FAERS Safety Report 10361027 (Version 3)
Quarter: 2014Q4

REPORT INFORMATION
  Report Type: Spontaneous
  Country: US (occurrence: US)
  Receive Date: 20140804
  Receipt Date: 20141001
  Transmission Date: 20150528
  Serious: Yes (Death, Hospitalization, Other)
  Sender: FDA-Public Use
  Company Number: US-009507513-1408USA000941

PATIENT
  Sex: Male
  Weight: 113.83 kg

DRUGS (1)
  1. JANUMET [Suspect]
     Active Substance: METFORMIN HYDROCHLORIDE\SITAGLIPTIN PHOSPHATE
     Indication: TYPE 2 DIABETES MELLITUS
     Dosage: 50/1000 MG, BID
     Route: 048
     Dates: start: 20120118, end: 20120420

REACTIONS (79)
  - Septic shock [Unknown]
  - Drain placement [Unknown]
  - Radiotherapy [Unknown]
  - Metastases to liver [Unknown]
  - Disease progression [Unknown]
  - Hepatic cyst [Unknown]
  - Dermatitis allergic [Unknown]
  - Insomnia [Unknown]
  - Diabetic neuropathy [Unknown]
  - Abscess drainage [Unknown]
  - Lymph gland infection [Unknown]
  - Proctitis [Unknown]
  - Pancreatic carcinoma metastatic [Unknown]
  - Acute kidney injury [Unknown]
  - Type V hyperlipidaemia [Unknown]
  - Dyspnoea exertional [Unknown]
  - Tonsillectomy [Unknown]
  - Somnolence [Unknown]
  - Sleep apnoea syndrome [Unknown]
  - Fat necrosis [Unknown]
  - Liver abscess [Unknown]
  - Hypokalaemia [Unknown]
  - Abdominal pain [Not Recovered/Not Resolved]
  - Sepsis [Unknown]
  - Transurethral prostatectomy [Unknown]
  - Bacteraemia [Unknown]
  - Respiratory disorder [Recovered/Resolved]
  - Dehydration [Recovered/Resolved with Sequelae]
  - Depression [Unknown]
  - Neuralgia [Unknown]
  - Hypokalaemia [Unknown]
  - Haemorrhoids [Unknown]
  - Arthritis [Unknown]
  - Hepatic infarction [Unknown]
  - Diabetes mellitus inadequate control [Unknown]
  - Rash maculo-papular [Recovering/Resolving]
  - Cholangitis [Recovering/Resolving]
  - Pleural effusion [Unknown]
  - Pancreatic insufficiency [Unknown]
  - Tachycardia [Unknown]
  - Lymphadenopathy [Unknown]
  - Seroma [Unknown]
  - Constipation [Unknown]
  - Adenocarcinoma pancreas [Unknown]
  - Clostridium difficile colitis [Unknown]
  - Sleep disorder [Unknown]
  - Pneumonia aspiration [Unknown]
  - Mucosal inflammation [Unknown]
  - Deep vein thrombosis [Unknown]
  - Gastrooesophageal reflux disease [Unknown]
  - Diabetes mellitus inadequate control [Recovering/Resolving]
  - Bile duct stent insertion [Unknown]
  - Scratch [Unknown]
  - Hepatic steatosis [Unknown]
  - Tinea pedis [Unknown]
  - Haematochezia [Unknown]
  - Organic erectile dysfunction [Unknown]
  - Chest pain [Unknown]
  - Omental infarction [Unknown]
  - Sepsis [Recovered/Resolved]
  - Liver abscess [Unknown]
  - Small intestine carcinoma [Unknown]
  - Cholelithiasis [Unknown]
  - Erosive duodenitis [Unknown]
  - Atelectasis [Unknown]
  - Skin ulcer [Not Recovered/Not Resolved]
  - Onychomycosis [Unknown]
  - Limb injury [Unknown]
  - Abscess drainage [Unknown]
  - Postoperative hernia [Unknown]
  - Enterococcal infection [Unknown]
  - Pancreaticoduodenectomy [Unknown]
  - Death [Fatal]
  - Cholangiocarcinoma [Unknown]
  - Iron deficiency anaemia [Unknown]
  - Benign prostatic hyperplasia [Unknown]
  - Incisional drainage [Unknown]
  - Palmar-plantar erythrodysaesthesia syndrome [Unknown]
  - Hyponatraemia [Unknown]

NARRATIVE: CASE EVENT DATE: 201204
